FAERS Safety Report 5518104-9 (Version None)
Quarter: 2007Q4

REPORT INFORMATION
  Report Type: 
  Country: None (occurrence: None)
  Receive Date: 20071115
  Receipt Date: 20071106
  Transmission Date: 20080405
  Serious: Yes (Hospitalization, Other)
  Sender: FDA-Public Use
  Company Number: GB-JNJFOC-20071102356

PATIENT
  Sex: Female
  Weight: 85 kg

DRUGS (8)
  1. INFLIXIMAB [Suspect]
     Indication: RHEUMATOID ARTHRITIS
     Route: 042
  2. METHOTREXATE [Concomitant]
  3. ASPIRIN [Concomitant]
  4. CO-CODAMOL [Concomitant]
  5. SODIUM CROMOGLYCATE [Concomitant]
  6. VALSARTAN [Concomitant]
  7. ZOTON [Concomitant]
  8. FUROSEMIDE [Concomitant]

REACTIONS (2)
  - DEEP VEIN THROMBOSIS [None]
  - KNEE ARTHROPLASTY [None]
